FAERS Safety Report 7292768-4 (Version None)
Quarter: 2011Q1

REPORT INFORMATION
  Report Type: 
  Country: None (occurrence: None)
  Receive Date: 20110215
  Receipt Date: 20110207
  Transmission Date: 20110831
  Serious: Yes (Other)
  Sender: FDA-Public Use
  Company Number: US-ASTRAZENECA-2011SE06950

PATIENT
  Age: 50 Year
  Sex: Male

DRUGS (3)
  1. ALPRAZOLAM [Concomitant]
  2. SEROQUEL [Suspect]
     Indication: BIPOLAR DISORDER
     Route: 048
     Dates: start: 20020101
  3. SEROQUEL [Suspect]
     Indication: SCHIZOPHRENIA
     Route: 048
     Dates: start: 20020101

REACTIONS (4)
  - CHRONIC HEPATIC FAILURE [None]
  - DYSPHAGIA [None]
  - GLUCOSE TOLERANCE IMPAIRED [None]
  - CORONARY ARTERY DISEASE [None]
